FAERS Safety Report 13554588 (Version 2)
Quarter: 2017Q2

REPORT INFORMATION
  Report Type: Spontaneous
  Country: JP (occurrence: JP)
  Receive Date: 20170517
  Receipt Date: 20170525
  Transmission Date: 20170830
  Serious: Yes (Death, Other)
  Sender: FDA-Public Use
  Company Number: JP-009507513-1704JPN001321J

PATIENT
  Age: 79 Year
  Sex: Female

DRUGS (2)
  1. NEXIUM [Concomitant]
     Active Substance: ESOMEPRAZOLE MAGNESIUM
     Dosage: UNK
     Route: 048
     Dates: start: 20170405, end: 20170405
  2. KEYTRUDA [Suspect]
     Active Substance: PEMBROLIZUMAB
     Indication: NON-SMALL CELL LUNG CANCER
     Dosage: 200 MG, Q3W
     Route: 041
     Dates: start: 20170405, end: 20170426

REACTIONS (8)
  - Malignant neoplasm progression [Fatal]
  - Pleural effusion [Unknown]
  - Rash [Recovered/Resolved]
  - Nausea [Recovered/Resolved]
  - Rash pruritic [Unknown]
  - Delirium [Unknown]
  - Tumour pain [Unknown]
  - Erythema [Unknown]

NARRATIVE: CASE EVENT DATE: 201704
